FAERS Safety Report 7581756-6 (Version None)
Quarter: 2011Q2

REPORT INFORMATION
  Report Type: 
  Country: None (occurrence: None)
  Receive Date: 20110629
  Receipt Date: 20110629
  Transmission Date: 20111010
  Serious: Yes (Hospitalization)
  Sender: FDA-Public Use
  Company Number: US-UCBSA-036230

PATIENT
  Sex: Female

DRUGS (5)
  1. DIGOXIN [Concomitant]
  2. ZYVOX [Concomitant]
  3. LOMOTIL [Concomitant]
  4. ENTOCORT EC [Concomitant]
  5. CIMZIA [Suspect]
     Route: 058
     Dates: start: 20090212

REACTIONS (3)
  - ABDOMINAL PAIN [None]
  - NODULE [None]
  - DIARRHOEA [None]
